FAERS Safety Report 9962890 (Version 2)
Quarter: 2014Q1

REPORT INFORMATION
  Report Type: Report from Study
  Country: US (occurrence: US)
  Receive Date: 20140305
  Receipt Date: 20140305
  Transmission Date: 20141002
  Serious: No
  Sender: FDA-Public Use
  Company Number: US-ABBVIE-13P-163-1056582-00

PATIENT
  Age: 52 Year
  Sex: Female

DRUGS (19)
  1. HUMIRA [Suspect]
     Indication: CROHN^S DISEASE
     Dates: start: 20121207
  2. IMMODIUM [Concomitant]
     Indication: PRODUCT USED FOR UNKNOWN INDICATION
     Dates: start: 20130219
  3. CIPROFLOXACIN [Concomitant]
     Indication: ANTIBIOTIC PROPHYLAXIS
  4. CIPROFLOXACIN [Concomitant]
     Dosage: 500 MG BID
     Dates: start: 20130218
  5. HYOSCYAMINE [Concomitant]
     Indication: MUSCLE SPASMS
  6. OMEPRAZOLE [Concomitant]
     Indication: CROHN^S DISEASE
     Dosage: 20 MG DAILY
  7. GABAPENTIN [Concomitant]
     Indication: PRODUCT USED FOR UNKNOWN INDICATION
     Dosage: 300 MG TID
  8. VICODIN [Concomitant]
     Indication: BACK PAIN
     Dosage: 5/500 MG
  9. VENTOLIN [Concomitant]
     Indication: PRODUCT USED FOR UNKNOWN INDICATION
     Dosage: INHALER
  10. ADVAIR [Concomitant]
     Indication: PRODUCT USED FOR UNKNOWN INDICATION
     Dosage: INHALER
  11. TUMS [Concomitant]
     Indication: PRODUCT USED FOR UNKNOWN INDICATION
     Dosage: SELF-DIRECTED
  12. PEPTO BISMOL [Concomitant]
     Indication: PRODUCT USED FOR UNKNOWN INDICATION
     Dosage: SELF-DIRECTED
  13. VITAMIN B12 [Concomitant]
     Indication: VITAMIN SUPPLEMENTATION
  14. D3 [Concomitant]
     Indication: VITAMIN SUPPLEMENTATION
  15. PROBIOTICS [Concomitant]
     Indication: PRODUCT USED FOR UNKNOWN INDICATION
     Dosage: 30 000 000 000 UNITS DAILY
  16. ANTI-YEAST MEDICATION [Concomitant]
     Indication: PRODUCT USED FOR UNKNOWN INDICATION
  17. POTASSIUM [Concomitant]
     Indication: MUSCLE SPASMS
  18. GOLD BOND ORIGINAL STRENGTH [Concomitant]
     Indication: RASH
     Dosage: HAND CREAM, SELF-TREATING
  19. ALOE VERA [Concomitant]
     Indication: RASH

REACTIONS (6)
  - Constipation [Recovering/Resolving]
  - Rash [Recovering/Resolving]
  - Abdominal pain [Recovered/Resolved]
  - Diarrhoea [Recovered/Resolved]
  - Urticaria [Recovered/Resolved]
  - Rash pruritic [Not Recovered/Not Resolved]
